FAERS Safety Report 5019225-X (Version None)
Quarter: 2006Q2

REPORT INFORMATION
  Report Type: 
  Country: None (occurrence: None)
  Receive Date: 20060531
  Receipt Date: 20060519
  Transmission Date: 20061013
  Serious: Yes (Hospitalization)
  Sender: FDA-Public Use
  Company Number: MEDI-0004593

PATIENT
  Age: 2 Month
  Weight: 2.5 kg

DRUGS (4)
  1. SYNAGIS [Suspect]
     Indication: ANTIVIRAL PROPHYLAXIS
     Dosage: SEE IMAGE
     Dates: start: 20051130, end: 20051130
  2. SYNAGIS [Suspect]
     Indication: ANTIVIRAL PROPHYLAXIS
     Dosage: SEE IMAGE
     Dates: start: 20060306, end: 20060306
  3. SYNAGIS [Suspect]
     Indication: ANTIVIRAL PROPHYLAXIS
     Dosage: SEE IMAGE
     Dates: start: 20060103
  4. SYNAGIS [Suspect]
     Indication: ANTIVIRAL PROPHYLAXIS
     Dosage: SEE IMAGE
     Dates: start: 20060203

REACTIONS (4)
  - GASTROENTERITIS [None]
  - INGUINAL HERNIA [None]
  - NASOPHARYNGITIS [None]
  - URINARY TRACT INFECTION [None]
